FAERS Safety Report 13662394 (Version 1)
Quarter: 2017Q2

REPORT INFORMATION
  Report Type: Spontaneous
  Country: US (occurrence: US)
  Receive Date: 20170617
  Receipt Date: 20170617
  Transmission Date: 20170830
  Serious: No
  Sender: FDA-Public Use
  Company Number: PHEH2017US018392

PATIENT
  Age: 78 Year
  Sex: Male
  Weight: 124.7 kg

DRUGS (1)
  1. DUREZOL [Suspect]
     Active Substance: DIFLUPREDNATE
     Indication: PRODUCT USED FOR UNKNOWN INDICATION
     Route: 047

REACTIONS (2)
  - Eyelid irritation [Recovering/Resolving]
  - Eyelid rash [Recovering/Resolving]

NARRATIVE: CASE EVENT DATE: 20170612
